FAERS Safety Report 5455662-7 (Version None)
Quarter: 2007Q3

REPORT INFORMATION
  Report Type: 
  Country: None (occurrence: None)
  Receive Date: 20070914
  Receipt Date: 20070830
  Transmission Date: 20080115
  Serious: Yes (Other)
  Sender: FDA-Public Use
  Company Number: SUS1-2003-00456

PATIENT
  Age: 8 Year
  Sex: Male

DRUGS (4)
  1. ADDERALL 10 [Suspect]
     Indication: ATTENTION DEFICIT/HYPERACTIVITY DISORDER
     Dosage: 20 MG, 1X/DAY:QD, ORAL;  15 MG, 1X/DAY:QD,ORAL; 25 MG, 1X/DAY:QD, ORAL
     Route: 048
     Dates: end: 20070828
  2. ADDERALL 10 [Suspect]
     Indication: ATTENTION DEFICIT/HYPERACTIVITY DISORDER
     Dosage: 20 MG, 1X/DAY:QD, ORAL;  15 MG, 1X/DAY:QD,ORAL; 25 MG, 1X/DAY:QD, ORAL
     Route: 048
  3. ADDERALL 10 [Suspect]
     Indication: ATTENTION DEFICIT/HYPERACTIVITY DISORDER
     Dosage: 20 MG, 1X/DAY:QD, ORAL;  15 MG, 1X/DAY:QD,ORAL; 25 MG, 1X/DAY:QD, ORAL
     Route: 048
  4. BENADRYL [Concomitant]

REACTIONS (5)
  - CONVULSION [None]
  - ELECTROENCEPHALOGRAM ABNORMAL [None]
  - HYPOAESTHESIA [None]
  - IRRITABILITY [None]
  - TREMOR [None]
